FAERS Safety Report 18789432 (Version 1)
Quarter: 2021Q1

REPORT INFORMATION
  Report Type: Spontaneous
  Country: FR (occurrence: FR)
  Receive Date: 20210126
  Receipt Date: 20210126
  Transmission Date: 20210419
  Serious: Yes (Other)
  Sender: FDA-Public Use
  Company Number: FR-MYLANLABS-2021M1004056

PATIENT
  Age: 72 Year
  Sex: Female
  Weight: 82 kg

DRUGS (2)
  1. DEXAMETHASONE. [Suspect]
     Active Substance: DEXAMETHASONE
     Indication: CORONAVIRUS INFECTION
     Dosage: 6 MILLIGRAM, QD
     Route: 048
     Dates: start: 20201110, end: 20201118
  2. DEXAMETHASONE MYLAN [Suspect]
     Active Substance: DEXAMETHASONE
     Indication: CORONAVIRUS INFECTION
     Dosage: 6 MILLIGRAM, QD
     Route: 042
     Dates: start: 20201109, end: 20201109

REACTIONS (2)
  - Diabetes mellitus inadequate control [Recovered/Resolved]
  - Off label use [Unknown]

NARRATIVE: CASE EVENT DATE: 20201109
